FAERS Safety Report 7402773-2 (Version None)
Quarter: 2011Q2

REPORT INFORMATION
  Report Type: 
  Country: None (occurrence: None)
  Receive Date: 20110408
  Receipt Date: 20110329
  Transmission Date: 20111010
  Serious: Yes (Other)
  Sender: FDA-Public Use
  Company Number: PHHY2010US88135

PATIENT
  Sex: Female

DRUGS (4)
  1. GILENYA [Suspect]
     Indication: MULTIPLE SCLEROSIS
     Dosage: 0.5 MG, QD
     Route: 048
     Dates: start: 20101220
  2. DIOVAN [Concomitant]
     Indication: HYPERTENSION
     Dosage: 30 MG, QD
     Route: 048
  3. IBUPROFEN [Concomitant]
     Indication: HEADACHE
     Dosage: 200 MG, ONE TO TWO TIMES
     Route: 048
  4. INDERAL LA [Concomitant]
     Indication: MIGRAINE
     Dosage: 60 MG, QD
     Route: 048

REACTIONS (1)
  - CHEST DISCOMFORT [None]
